FAERS Safety Report 5276001-0 (Version None)
Quarter: 2007Q1

REPORT INFORMATION
  Report Type: 
  Country: None (occurrence: None)
  Receive Date: 20070326
  Receipt Date: 20061102
  Transmission Date: 20070707
  Serious: Yes (Hospitalization)
  Sender: FDA-Public Use
  Company Number: BR-JNJFOC-20061002064

PATIENT
  Sex: Male
  Weight: 93 kg

DRUGS (12)
  1. PLACEBO [Suspect]
     Indication: HIV INFECTION
     Route: 048
  2. TMC114 [Suspect]
     Route: 048
  3. TMC114 [Suspect]
     Indication: HIV INFECTION
     Route: 048
  4. RITONAVIR [Suspect]
     Indication: HIV INFECTION
     Route: 048
  5. COMBIVIR [Concomitant]
     Indication: HIV INFECTION
     Route: 048
  6. VIREAD [Concomitant]
     Indication: HIV INFECTION
     Route: 048
  7. FUZEON [Concomitant]
     Indication: HIV INFECTION
     Route: 058
  8. COTRIMOXAZOLE [Concomitant]
     Indication: TOXOPLASMOSIS PROPHYLAXIS
     Route: 048
  9. COTRIMOXAZOLE [Concomitant]
     Indication: ANTIFUNGAL PROPHYLAXIS
     Route: 048
  10. FLUCONAZOLE [Concomitant]
     Indication: CANDIDIASIS
     Route: 048
  11. BENZAFIBRATE [Concomitant]
     Indication: DYSLIPIDAEMIA
     Route: 048
  12. AZITHROMYCIN [Concomitant]
     Indication: PROPHYLAXIS
     Route: 048

REACTIONS (1)
  - ENCEPHALITIS CYTOMEGALOVIRUS [None]
